FAERS Safety Report 8402242-7 (Version None)
Quarter: 2012Q2

REPORT INFORMATION
  Report Type: 
  Country: None (occurrence: None)
  Receive Date: 20120525
  Receipt Date: 20120515
  Transmission Date: 20120825
  Serious: No
  Sender: FDA-Public Use
  Company Number: 2012SP025722

PATIENT

DRUGS (1)
  1. SAPHRIS [Suspect]
     Indication: PRODUCT USED FOR UNKNOWN INDICATION
     Dosage: 2.5;20;10 MG, HS, QD

REACTIONS (4)
  - FATIGUE [None]
  - INSOMNIA [None]
  - SEDATION [None]
  - SWOLLEN TONGUE [None]
